FAERS Safety Report 14819706 (Version 1)
Quarter: 2018Q2

REPORT INFORMATION
  Report Type: Report from Study
  Country: US (occurrence: US)
  Receive Date: 20180427
  Receipt Date: 20180427
  Transmission Date: 20180711
  Serious: Yes (Other)
  Sender: FDA-Public Use
  Company Number: US-ROCHE-2115674

PATIENT

DRUGS (1)
  1. RIBAVIRIN. [Suspect]
     Active Substance: RIBAVIRIN
     Indication: RESPIRATORY SYNCYTIAL VIRUS INFECTION
     Dosage: 800 MG IF WEIGHT WAS }/= 75 KG OR 600 MG IF WEIGHT WAS {75 KG
     Route: 048

REACTIONS (2)
  - Thrombocytopenia [Unknown]
  - Leukopenia [Unknown]
